FAERS Safety Report 14007814 (Version 1)
Quarter: 2017Q3

REPORT INFORMATION
  Report Type: Spontaneous
  Country: US (occurrence: US)
  Receive Date: 20170925
  Receipt Date: 20170925
  Transmission Date: 20171128
  Serious: Yes (Other)
  Sender: FDA-Public Use
  Company Number: US-BRAINTREE LABORATORIES-170535

PATIENT
  Sex: Female

DRUGS (1)
  1. NULYTELY [Suspect]
     Active Substance: POLYETHYLENE GLYCOL 3350\POTASSIUM CHLORIDE\SODIUM BICARBONATE\SODIUM CHLORIDE
     Indication: COLONOSCOPY
     Route: 065

REACTIONS (8)
  - Respiration abnormal [None]
  - Blood pressure increased [None]
  - Diarrhoea [None]
  - Dizziness [None]
  - Rhabdomyolysis [None]
  - Skin ulcer [None]
  - Headache [None]
  - Visual impairment [None]
